FAERS Safety Report 17904550 (Version 1)
Quarter: 2020Q2

REPORT INFORMATION
  Report Type: Spontaneous
  Country: US (occurrence: US)
  Receive Date: 20200616
  Receipt Date: 20200616
  Transmission Date: 20200714
  Serious: No
  Sender: FDA-Public Use
  Company Number: US-ROCHE-2439379

PATIENT
  Age: 46 Year
  Sex: Female
  Weight: 63.56 kg

DRUGS (1)
  1. ACTEMRA [Suspect]
     Active Substance: TOCILIZUMAB
     Indication: RHEUMATOID ARTHRITIS
     Dosage: ONGOING: YES
     Route: 065

REACTIONS (4)
  - Exposure via skin contact [Unknown]
  - Product quality issue [Unknown]
  - Skin laceration [Unknown]
  - Device malfunction [Unknown]

NARRATIVE: CASE EVENT DATE: 20190830
